FAERS Safety Report 23297118 (Version 1)
Quarter: 2023Q4

REPORT INFORMATION
  Report Type: Spontaneous
  Country: NO (occurrence: NO)
  Receive Date: 20231214
  Receipt Date: 20231214
  Transmission Date: 20240109
  Serious: Yes (Hospitalization, Other)
  Sender: FDA-Public Use
  Company Number: None

PATIENT
  Age: 49 Year
  Sex: Female
  Weight: 63 kg

DRUGS (1)
  1. VENLAFAXINE HYDROCHLORIDE [Suspect]
     Active Substance: VENLAFAXINE HYDROCHLORIDE
     Indication: Depression
     Dosage: 75 MILLIGRAM (75 MG)
     Route: 048
     Dates: start: 2023, end: 2023

REACTIONS (3)
  - Hallucination [Recovered/Resolved]
  - Malaise [Unknown]
  - Cold sweat [Unknown]

NARRATIVE: CASE EVENT DATE: 20230101
